FAERS Safety Report 23321346 (Version 1)
Quarter: 2023Q4

REPORT INFORMATION
  Report Type: Spontaneous
  Country: DE (occurrence: DE)
  Receive Date: 20231220
  Receipt Date: 20231220
  Transmission Date: 20240109
  Serious: Yes (Hospitalization)
  Sender: FDA-Public Use
  Company Number: DE-BENDALIS-2023-00001493

PATIENT
  Age: 64 Year
  Sex: Female

DRUGS (3)
  1. PACLITAXEL [Suspect]
     Active Substance: PACLITAXEL
     Indication: Breast cancer
     Dosage: 4DOSES (DOXORUBICIN,CYCLOPHOPHAMIDE) FOLLOWED 12 DOSES PACLITAXEL
     Route: 065
  2. DOXORUBICIN [Concomitant]
     Active Substance: DOXORUBICIN
     Indication: Breast cancer
     Dosage: 4DOSES (DOXORUBICIN,CYCLOPHOPHAMIDE) FOLLOWED 12 DOSES PACLITAXEL
     Route: 065
  3. CYCLOPHOSPHAMIDE [Concomitant]
     Active Substance: CYCLOPHOSPHAMIDE
     Indication: Breast cancer
     Dosage: 4DOSES (DOXORUBICIN,CYCLOPHOPHAMIDE) FOLLOWED 12 DOSES PACLITAXEL
     Route: 065

REACTIONS (1)
  - Pneumonitis [Recovered/Resolved]
